FAERS Safety Report 5536522-X (Version None)
Quarter: 2007Q4

REPORT INFORMATION
  Report Type: 
  Country: None (occurrence: None)
  Receive Date: 20071206
  Receipt Date: 20071004
  Transmission Date: 20080405
  Serious: Yes (Other)
  Sender: FDA-Public Use
  Company Number: US-AMGEN-STX220082

PATIENT
  Sex: Female
  Weight: 95.3 kg

DRUGS (4)
  1. ENBREL [Suspect]
     Indication: RHEUMATOID ARTHRITIS
     Route: 058
     Dates: start: 20060403, end: 20070222
  2. METHOTREXATE [Concomitant]
     Route: 048
     Dates: end: 20070216
  3. PREDNISONE TAB [Concomitant]
     Dates: end: 20070404
  4. FOLIC ACID [Concomitant]

REACTIONS (1)
  - BREAST CANCER [None]
